FAERS Safety Report 9306640 (Version 1)
Quarter: 2013Q2

REPORT INFORMATION
  Report Type: Spontaneous
  Country: DE (occurrence: DE)
  Receive Date: 20130523
  Receipt Date: 20130523
  Transmission Date: 20140414
  Serious: Yes (Other)
  Sender: FDA-Public Use
  Company Number: DE-JNJFOC-20130507518

PATIENT
  Age: 20 Year
  Sex: Female
  Weight: 65 kg

DRUGS (5)
  1. TOPIRAMATE [Suspect]
     Indication: EPILEPSY
     Route: 048
     Dates: start: 20121015, end: 20130305
  2. LAMOTRIGIN [Suspect]
     Indication: EPILEPSY
     Route: 048
     Dates: start: 20121015, end: 20130305
  3. FOLSAURE [Concomitant]
     Indication: PROPHYLAXIS OF NEURAL TUBE DEFECT
     Route: 048
     Dates: start: 20121120, end: 20130305
  4. CEFUROXIM [Concomitant]
     Indication: BACTERIAL INFECTION
     Route: 042
     Dates: start: 20130304, end: 20130305
  5. BUSCOPAN [Concomitant]
     Indication: PAIN
     Dosage: 60MG(20MGX3)
     Route: 042
     Dates: start: 20130304, end: 20130305

REACTIONS (3)
  - Premature rupture of membranes [Unknown]
  - Foetal death [Recovered/Resolved]
  - Exposure during pregnancy [Recovered/Resolved]
